FAERS Safety Report 17978301 (Version 1)
Quarter: 2020Q3

REPORT INFORMATION
  Report Type: Spontaneous
  Country: US (occurrence: US)
  Receive Date: 20200703
  Receipt Date: 20200703
  Transmission Date: 20201103
  Serious: No
  Sender: FDA-Public Use
  Company Number: US-LUPIN PHARMACEUTICALS INC.-2020-01988

PATIENT
  Age: 33 Year
  Sex: Female
  Weight: 58.96 kg

DRUGS (1)
  1. BLISOVI FE 1/20 [Suspect]
     Active Substance: ETHINYL ESTRADIOL\NORETHINDRONE ACETATE
     Indication: CONTRACEPTION
     Dosage: 1 DOSAGE FORM, QD ((1 MG/0.02 MG))
     Route: 048
     Dates: start: 20200223, end: 20200307

REACTIONS (3)
  - Product dose omission issue [Unknown]
  - Metrorrhagia [Unknown]
  - Influenza [Unknown]

NARRATIVE: CASE EVENT DATE: 20200308
